FAERS Safety Report 20552987 (Version 1)
Quarter: 2022Q1

REPORT INFORMATION
  Report Type: Spontaneous
  Country: US (occurrence: US)
  Receive Date: 20220304
  Receipt Date: 20220304
  Transmission Date: 20220424
  Serious: No
  Sender: FDA-Public Use
  Company Number: US-SA-SAC20220301000181

PATIENT
  Age: 64 Year
  Sex: Female

DRUGS (1)
  1. DUPIXENT [Suspect]
     Active Substance: DUPILUMAB
     Indication: Candida infection
     Dosage: 300 MG, QOW
     Route: 058
     Dates: start: 202201

REACTIONS (4)
  - Hypertension [Unknown]
  - Cardiac murmur [Unknown]
  - Insomnia [Unknown]
  - Product use in unapproved indication [Unknown]
